FAERS Safety Report 12165927 (Version 6)
Quarter: 2020Q2

REPORT INFORMATION
  Report Type: Spontaneous
  Country: FR (occurrence: FR)
  Receive Date: 20160309
  Receipt Date: 20200629
  Transmission Date: 20200713
  Serious: Yes (Congenital Anomaly, Other)
  Sender: FDA-Public Use
  Company Number: FR-ABBVIE-16P-056-1577235-00

PATIENT
  Sex: Male
  Weight: 3.1 kg

DRUGS (1)
  1. DEPAKINE [Suspect]
     Active Substance: VALPROATE SODIUM
     Indication: MATERNAL EXPOSURE TIMING UNSPECIFIED
     Route: 064

REACTIONS (17)
  - Nervous system disorder [Not Recovered/Not Resolved]
  - Myopia [Unknown]
  - Major depression [Unknown]
  - Foetal exposure during pregnancy [Unknown]
  - Respiratory disorder [Unknown]
  - Paranasal sinus mucosal hypertrophy [Recovered/Resolved]
  - Congenital anomaly [Not Recovered/Not Resolved]
  - Nasal septum deviation [Recovered/Resolved]
  - Aggression [Not Recovered/Not Resolved]
  - Paranasal sinus mucosal hypertrophy [Unknown]
  - Memory impairment [Unknown]
  - Dysmorphism [Unknown]
  - Personal relationship issue [Unknown]
  - Ligament laxity [Unknown]
  - Behaviour disorder [Not Recovered/Not Resolved]
  - Delusion [Unknown]
  - Language disorder [Unknown]
